FAERS Safety Report 9855357 (Version 6)
Quarter: 2014Q4

REPORT INFORMATION
  Report Type: Spontaneous
  Country: DE (occurrence: DE)
  Receive Date: 20140130
  Receipt Date: 20141119
  Transmission Date: 20150529
  Serious: Yes (Hospitalization)
  Sender: FDA-Public Use
  Company Number: DE-JNJFOC-20110406189

PATIENT
  Sex: Male

DRUGS (2)
  1. HALOPERIDOL. [Concomitant]
     Active Substance: HALOPERIDOL
  2. RISPERDAL CONSTA [Suspect]
     Active Substance: RISPERIDONE
     Indication: SCHIZOPHRENIA, PARANOID TYPE
     Route: 030
     Dates: start: 20101213, end: 201105

REACTIONS (5)
  - Hospitalisation [Recovered/Resolved]
  - Ejaculation disorder [Recovered/Resolved with Sequelae]
  - Adverse event [Unknown]
  - Drug ineffective [Unknown]
  - Libido decreased [Recovered/Resolved with Sequelae]
